FAERS Safety Report 5949708-7 (Version None)
Quarter: 2008Q4

REPORT INFORMATION
  Report Type: 
  Country: None (occurrence: None)
  Receive Date: 20081112
  Receipt Date: 20081105
  Transmission Date: 20090506
  Serious: Yes (Other)
  Sender: FDA-Public Use
  Company Number: CH-WYE-G02223508

PATIENT
  Age: 46 Year
  Sex: Female
  Weight: 50 kg

DRUGS (2)
  1. EFFEXOR [Suspect]
     Indication: DEPRESSION
     Dosage: UP TO 225 MG DAILY
     Dates: end: 20070101
  2. EFFEXOR [Suspect]
     Dates: start: 20070101, end: 20070701

REACTIONS (5)
  - AGITATION [None]
  - ANXIETY [None]
  - DEPERSONALISATION [None]
  - DRUG WITHDRAWAL SYNDROME [None]
  - PALPITATIONS [None]
